FAERS Safety Report 8509142-2 (Version None)
Quarter: 2012Q3

REPORT INFORMATION
  Report Type: 
  Country: None (occurrence: None)
  Receive Date: 20120713
  Receipt Date: 20120615
  Transmission Date: 20120928
  Serious: Yes (Other)
  Sender: FDA-Public Use
  Company Number: JP-GLAXOSMITHKLINE-B0809636A

PATIENT
  Sex: Female

DRUGS (6)
  1. MUCODYNE [Concomitant]
     Indication: PRODUCTIVE COUGH
     Dosage: 1500MG PER DAY
     Route: 048
     Dates: start: 20080101
  2. FLUTICASONE PROPIONATE [Concomitant]
     Indication: WHEEZING
     Dosage: 800MCG PER DAY
     Route: 055
     Dates: start: 20080101
  3. SEREVENT [Suspect]
     Dosage: 200MCG PER DAY
     Route: 055
     Dates: start: 20120101, end: 20120101
  4. THEO-DUR [Concomitant]
     Indication: WHEEZING
     Dosage: 400MG PER DAY
     Route: 048
     Dates: start: 20080101
  5. SEREVENT [Suspect]
     Indication: ASTHMA
     Dosage: 100MCG PER DAY
     Route: 055
     Dates: start: 20080101
  6. ZADITEN [Concomitant]
     Indication: WHEEZING
     Dosage: 1MG PER DAY
     Route: 048
     Dates: start: 20080101

REACTIONS (4)
  - OVERDOSE [None]
  - PRODUCT QUALITY ISSUE [None]
  - DYSPNOEA [None]
  - ASTHMA [None]
